FAERS Safety Report 6484755-0 (Version None)
Quarter: 2009Q4

REPORT INFORMATION
  Report Type: 
  Country: None (occurrence: None)
  Receive Date: 20091209
  Receipt Date: 20090604
  Transmission Date: 20100525
  Serious: No
  Sender: FDA-Public Use
  Company Number: US-AMGEN-KDL350037

PATIENT
  Sex: Male

DRUGS (4)
  1. ENBREL [Suspect]
     Indication: PSORIATIC ARTHROPATHY
  2. GLYBURIDE [Concomitant]
  3. BABY ASPIRIN [Concomitant]
  4. MULTI-VITAMINS [Concomitant]

REACTIONS (4)
  - ERYTHEMA [None]
  - LIMB INJURY [None]
  - SINUSITIS [None]
  - WOUND SECRETION [None]
